FAERS Safety Report 7684291-X (Version None)
Quarter: 2011Q3

REPORT INFORMATION
  Report Type: 
  Country: None (occurrence: None)
  Receive Date: 20110815
  Receipt Date: 20110710
  Transmission Date: 20111222
  Serious: No
  Sender: FDA-Public Use
  Company Number: US-BAYER-2011-060473

PATIENT
  Sex: Female

DRUGS (6)
  1. ALEVE (CAPLET) [Suspect]
     Indication: HEADACHE
     Route: 048
  2. EXCEDRIN (MIGRAINE) [Concomitant]
  3. ACETAMINOPHEN [Concomitant]
  4. ASPIRIN [Suspect]
     Indication: HEADACHE
     Route: 048
  5. MOTRIN [Concomitant]
  6. ADVIL LIQUI-GELS [Concomitant]

REACTIONS (1)
  - HEADACHE [None]
